FAERS Safety Report 17640454 (Version 5)
Quarter: 2020Q3

REPORT INFORMATION
  Report Type: Report from Study
  Country: JP (occurrence: JP)
  Receive Date: 20200407
  Receipt Date: 20200716
  Transmission Date: 20201102
  Serious: Yes (Hospitalization)
  Sender: FDA-Public Use
  Company Number: JP-JNJFOC-20200344377

PATIENT
  Age: 88 Year
  Sex: Male
  Weight: 47.1 kg

DRUGS (21)
  1. BSS PLUS [Concomitant]
     Active Substance: CALCIUM CHLORIDE\DEXTROSE\MAGNESIUM CHLORIDE\OXIGLUTATIONE\POTASSIUM CHLORIDE\SODIUM BICARBONATE\SODIUM CHLORIDE\SODIUM PHOSPHATE\SODIUM PHOSPHATE, DIBASIC
     Indication: CATARACT
     Dosage: FREQUENCY: AS NECESSARY
     Route: 061
     Dates: start: 20181116
  2. DL?METHIONINE W/GLYCINE/GLYCYRRHIZIC ACID [Concomitant]
     Indication: DECREASED APPETITE
     Route: 048
     Dates: start: 20190909
  3. ADALAT [Concomitant]
     Active Substance: NIFEDIPINE
  4. VEGAMOX [Concomitant]
     Active Substance: MOXIFLOXACIN HYDROCHLORIDE
     Indication: CATARACT
     Dosage: 1 DROP
     Route: 047
     Dates: start: 20181113
  5. OXYBUPROCAINE HYDROCHLORIDE [Concomitant]
     Active Substance: BENOXINATE HYDROCHLORIDE
     Indication: ANAESTHESIA PROCEDURE
     Dosage: FREQUENCY: AS NECESSARY
     Route: 061
     Dates: start: 20181116
  6. NEXIUM [Concomitant]
     Active Substance: ESOMEPRAZOLE MAGNESIUM
     Indication: PROPHYLAXIS
     Route: 048
     Dates: start: 20200329, end: 20200601
  7. URSODEOXYCHOLIC ACID [Concomitant]
     Active Substance: URSODIOL
     Indication: DECREASED APPETITE
     Route: 048
     Dates: start: 20190909
  8. DENOTAS [Concomitant]
     Active Substance: CALCIUM CARBONATE\CHOLECALCIFEROL\MAGNESIUM CARBONATE
     Indication: HYPOCALCAEMIA
     Route: 048
     Dates: start: 20161025
  9. RANMARK [Concomitant]
     Active Substance: DENOSUMAB
     Indication: METASTASES TO BONE
     Route: 058
     Dates: start: 20160808
  10. SANBETASON [Concomitant]
     Active Substance: DEXAMETHASONE
     Indication: CATARACT
     Dosage: 1 DROP
     Route: 047
     Dates: start: 20181117
  11. OPELEAD HV [Concomitant]
     Indication: CATARACT
     Dosage: FREQUENCY: AS NECESSARY
     Route: 061
     Dates: start: 20181116
  12. GENTACIN [Concomitant]
     Active Substance: GENTAMICIN SULFATE
     Indication: INJECTION SITE INDURATION
     Dosage: FREQUENCY: AS NECESSARY
     Route: 003
     Dates: start: 20170410
  13. ECARD [Concomitant]
     Active Substance: CANDESARTAN CILEXETIL\HYDROCHLOROTHIAZIDE
     Indication: HYPERTENSION
     Route: 048
     Dates: start: 20180629
  14. NEVANAC [Concomitant]
     Active Substance: NEPAFENAC
     Indication: CATARACT
     Dosage: 1 DROP
     Route: 047
     Dates: start: 20181117
  15. PLACEBO [Suspect]
     Active Substance: UNSPECIFIED INGREDIENT
     Indication: PROSTATE CANCER METASTATIC
     Route: 048
     Dates: start: 20160927, end: 20200316
  16. SHELLGAN [Concomitant]
     Indication: CATARACT
     Dosage: FREQUENCY: AS NECESSARY
     Route: 061
     Dates: start: 20181116
  17. DENOTAS [Concomitant]
     Active Substance: CALCIUM CARBONATE\CHOLECALCIFEROL\MAGNESIUM CARBONATE
     Indication: HYPOCALCAEMIA
     Route: 048
     Dates: start: 20160808
  18. ADALAT [Concomitant]
     Active Substance: NIFEDIPINE
     Route: 048
     Dates: start: 20180409
  19. MYSER [Concomitant]
     Indication: INJECTION SITE INDURATION
     Dosage: FREQUENCY: AS NECESSARY
     Route: 061
     Dates: start: 20170410
  20. HISHIPHAGEN?C [Concomitant]
     Indication: RASH
     Dosage: FREQUENCY: AS NECESSARY
     Route: 042
     Dates: start: 20190909
  21. FOSAMAC [Concomitant]
     Active Substance: ALENDRONATE SODIUM
     Indication: OSTEOPOROSIS PROPHYLAXIS
     Route: 048
     Dates: start: 20200329, end: 20200601

REACTIONS (1)
  - Interstitial lung disease [Recovered/Resolved]

NARRATIVE: CASE EVENT DATE: 20200316
